FAERS Safety Report 11390869 (Version 1)
Quarter: 2015Q3

REPORT INFORMATION
  Report Type: Report from Study
  Country: DZ (occurrence: DZ)
  Receive Date: 20150818
  Receipt Date: 20150818
  Transmission Date: 20151125
  Serious: Yes (Other)
  Sender: FDA-Public Use
  Company Number: DZ-ROCHE-1619920

PATIENT
  Sex: Female

DRUGS (1)
  1. BEVACIZUMAB [Suspect]
     Active Substance: BEVACIZUMAB
     Indication: NEOPLASM MALIGNANT
     Route: 065

REACTIONS (12)
  - Haemorrhage [Unknown]
  - Anaemia [Unknown]
  - Vision blurred [Unknown]
  - Mental disorder [Unknown]
  - Asthenia [Unknown]
  - Bone pain [Unknown]
  - Diabetes mellitus [Unknown]
  - Thrombosis [Unknown]
  - Gastrointestinal disorder [Unknown]
  - Abdominal pain upper [Unknown]
  - Pulmonary fibrosis [Unknown]
  - Hypertension [Unknown]
